FAERS Safety Report 19490123 (Version 2)
Quarter: 2021Q4

REPORT INFORMATION
  Report Type: Spontaneous
  Country: BR (occurrence: BR)
  Receive Date: 20210705
  Receipt Date: 20211008
  Transmission Date: 20220303
  Serious: Yes (Other)
  Sender: FDA-Public Use
  Company Number: BR-BRISTOL-MYERS SQUIBB COMPANY-BMS-2021-063459

PATIENT
  Age: 59 Year
  Sex: Male

DRUGS (6)
  1. NIVOLUMAB [Suspect]
     Active Substance: NIVOLUMAB
     Indication: Renal neoplasm
     Dosage: 240 MILLIGRAM ( C1D1)
     Route: 065
     Dates: start: 20190309
  2. NIVOLUMAB [Suspect]
     Active Substance: NIVOLUMAB
     Dosage: 240 MILLIGRAM ( C4D1)
     Route: 065
     Dates: start: 20190611
  3. NIVOLUMAB [Suspect]
     Active Substance: NIVOLUMAB
     Dosage: 240 MILLIGRAM, Q2WK
     Route: 065
     Dates: start: 201911, end: 202005
  4. NIVOLUMAB [Suspect]
     Active Substance: NIVOLUMAB
     Dosage: 480 MILLIGRAM, Q4WK
     Route: 065
     Dates: start: 202006
  5. IPILIMUMAB [Suspect]
     Active Substance: IPILIMUMAB
     Indication: Renal neoplasm
     Dosage: UNK
     Route: 065
     Dates: start: 20190309
  6. IPILIMUMAB [Suspect]
     Active Substance: IPILIMUMAB
     Dosage: UNK (C4D1)
     Route: 065
     Dates: start: 20190611

REACTIONS (5)
  - Myelosuppression [Unknown]
  - Fatigue [Unknown]
  - Dermatitis [Recovered/Resolved]
  - Arthritis [Not Recovered/Not Resolved]
  - Myositis [Not Recovered/Not Resolved]
